FAERS Safety Report 20518653 (Version 1)
Quarter: 2022Q1

REPORT INFORMATION
  Report Type: Spontaneous
  Country: US (occurrence: None)
  Receive Date: 20220224
  Receipt Date: 20220224
  Transmission Date: 20220424
  Serious: Yes (Other)
  Sender: FDA-Public Use
  Company Number: None

PATIENT
  Age: 69 Year
  Sex: Female
  Weight: 58.5 kg

DRUGS (26)
  1. FENTANYL TRANSDERMAL SYSTEM [Suspect]
     Active Substance: FENTANYL
     Indication: Pain
     Dosage: OTHER STRENGTH : MCG/HR;?OTHER QUANTITY : 1 PATCH(ES);?OTHER FREQUENCY : ONE PATCH EVERY 72;?
     Route: 061
  2. FENTANYL TRANSDERMAL SYSTEM [Suspect]
     Active Substance: FENTANYL
     Indication: Pain
     Dosage: OTHER STRENGTH : MCG/HR;?OTHER QUANTITY : 1 PATCH/72 HRS;?OTHER FREQUENCY : EVERY 72 HRS;?
     Route: 061
  3. ALBUTEROL [Concomitant]
     Active Substance: ALBUTEROL
  4. TRAMADOL [Concomitant]
     Active Substance: TRAMADOL
  5. VITAMINS [Concomitant]
     Active Substance: VITAMINS
  6. ARTIFIAL TEARS [Concomitant]
  7. ASPIRIN [Concomitant]
     Active Substance: ASPIRIN
  8. DIAZEPAM [Concomitant]
     Active Substance: DIAZEPAM
  9. FENTANYL [Concomitant]
     Active Substance: FENTANYL
  10. FLUTICASONE [Concomitant]
     Active Substance: FLUTICASONE
  11. GABAPENTIN [Concomitant]
     Active Substance: GABAPENTIN
  12. HYDROXYCHLOROQUINE [Concomitant]
     Active Substance: HYDROXYCHLOROQUINE
  13. MONTELUKAST [Concomitant]
     Active Substance: MONTELUKAST SODIUM
  14. NITROGLYCERIN [Concomitant]
     Active Substance: NITROGLYCERIN
  15. PANTOPRAZOLE [Concomitant]
     Active Substance: PANTOPRAZOLE
  16. OXYCODONE [Concomitant]
     Active Substance: OXYCODONE
  17. POTASSIUM CHLORIDE [Concomitant]
  18. PREDNISONE [Concomitant]
     Active Substance: PREDNISONE
  19. SUMATRIPTAN [Concomitant]
     Active Substance: SUMATRIPTAN
  20. TRAZODONE [Concomitant]
     Active Substance: TRAZODONE HYDROCHLORIDE
  21. BIPAP MACHINE [Concomitant]
  22. RIGHT EYE PROSTHESIS [Concomitant]
  23. DEVICE [Concomitant]
     Active Substance: DEVICE
  24. VITAMINS [Concomitant]
     Active Substance: VITAMINS
  25. CALCIUM TABS [Concomitant]
  26. ARTIFIAL TEARS [Concomitant]

REACTIONS (5)
  - Manufacturing issue [None]
  - Product quality issue [None]
  - Chills [None]
  - Drug withdrawal syndrome [None]
  - Nausea [None]

NARRATIVE: CASE EVENT DATE: 20211120
